FAERS Safety Report 24468272 (Version 1)
Quarter: 2024Q4

REPORT INFORMATION
  Report Type: Spontaneous
  Country: FR (occurrence: FR)
  Receive Date: 20241018
  Receipt Date: 20241018
  Transmission Date: 20250115
  Serious: Yes (Hospitalization)
  Sender: RANBAXY
  Company Number: FR-SUN PHARMACEUTICAL INDUSTRIES LTD-2024RR-473753

PATIENT
  Sex: Female
  Weight: 3.43 kg

DRUGS (2)
  1. SERTRALINE [Suspect]
     Active Substance: SERTRALINE HYDROCHLORIDE
     Indication: Product used for unknown indication
     Dosage: INTRODUCTION ON 08/07 AT 25 MG/DAY THEN CHANGE TO 50 MG/DAY ON 13/07
     Route: 064
     Dates: start: 20240708, end: 20240725
  2. CYMBALTA [Concomitant]
     Active Substance: DULOXETINE HYDROCHLORIDE
     Indication: Product used for unknown indication
     Dosage: 60 MG/DAY UNTIL 08/7, DECREASE TO 30 MG/DAY THEN STOP ON 13/07
     Route: 064
     Dates: start: 20231205, end: 20240713

REACTIONS (3)
  - Immature respiratory system [Recovering/Resolving]
  - Premature baby [Recovering/Resolving]
  - Neonatal hypoxia [Recovering/Resolving]

NARRATIVE: CASE EVENT DATE: 20240725
